FAERS Safety Report 8157234-2 (Version None)
Quarter: 2012Q1

REPORT INFORMATION
  Report Type: 
  Country: None (occurrence: None)
  Receive Date: 20120222
  Receipt Date: 20120222
  Transmission Date: 20120608
  Serious: Yes (Other)
  Sender: FDA-Public Use
  Company Number: None

PATIENT
  Age: 11 Month
  Sex: Female
  Weight: 10.432 kg

DRUGS (1)
  1. LITTLE TUMMIES STIMULANT LAXATIV [Suspect]
     Indication: CONSTIPATION
     Dosage: 3 CC
     Route: 048
     Dates: start: 20110315, end: 20120221

REACTIONS (3)
  - GASTROINTESTINAL HAEMORRHAGE [None]
  - PRODUCT TASTE ABNORMAL [None]
  - PRODUCT PHYSICAL ISSUE [None]
